FAERS Safety Report 10540558 (Version 1)
Quarter: 2014Q4

REPORT INFORMATION
  Report Type: Spontaneous
  Country: GB (occurrence: None)
  Receive Date: 20141022
  Receipt Date: 20141022
  Transmission Date: 20150529
  Serious: Yes (Life-Threatening, Hospitalization)
  Sender: FDA-Public Use
  Company Number: INT_00480_2014

PATIENT
  Age: 36 Year
  Sex: Male

DRUGS (3)
  1. ETOPOSIDE. [Suspect]
     Active Substance: ETOPOSIDE
     Indication: TESTIS CANCER
     Dosage: AT LEAST 2 CYCLES, DOSE AND FREQUENCY UNKNOWN
  2. BLEOMYCIN [Suspect]
     Active Substance: BLEOMYCIN SULFATE
     Indication: TESTIS CANCER
     Dosage: AT LEAST 2 CYCLES, DOSE AND FREQUENCY UNKNOWN
  3. CISPLATIN. [Suspect]
     Active Substance: CISPLATIN
     Indication: TESTIS CANCER
     Dosage: AT LEAST 2 CYCLES, DOSE AND FREQUENCY UNKNOWN

REACTIONS (8)
  - Aphasia [None]
  - Cerebral infarction [None]
  - Carotid artery thrombosis [None]
  - Pulmonary embolism [None]
  - Agitation [None]
  - Seizure [None]
  - Carotid artery occlusion [None]
  - Haemorrhagic transformation stroke [None]
